FAERS Safety Report 4910685-9 (Version None)
Quarter: 2006Q1

REPORT INFORMATION
  Report Type: 
  Country: None (occurrence: None)
  Receive Date: 20060214
  Receipt Date: 20060202
  Transmission Date: 20060701
  Serious: Yes (Other)
  Sender: FDA-Public Use
  Company Number: FR-BRISTOL-MYERS SQUIBB COMPANY-13271374

PATIENT
  Age: 67 Year
  Sex: Female

DRUGS (1)
  1. TAXOL [Suspect]
     Indication: LUNG NEOPLASM MALIGNANT
     Route: 042

REACTIONS (2)
  - CATARACT [None]
  - MACULAR OEDEMA [None]
